FAERS Safety Report 6778638-6 (Version None)
Quarter: 2010Q2

REPORT INFORMATION
  Report Type: 
  Country: None (occurrence: None)
  Receive Date: 20100618
  Receipt Date: 20100610
  Transmission Date: 20101027
  Serious: Yes (Other)
  Sender: FDA-Public Use
  Company Number: US-CELGENEUS-163-21880-10061261

PATIENT
  Sex: Female

DRUGS (3)
  1. REVLIMID [Suspect]
     Route: 048
     Dates: start: 20100301
  2. REVLIMID [Suspect]
     Route: 048
     Dates: start: 20100205
  3. REVLIMID [Suspect]
     Route: 048
     Dates: start: 20070801

REACTIONS (1)
  - GOITRE [None]
